FAERS Safety Report 5824414-8 (Version None)
Quarter: 2008Q3

REPORT INFORMATION
  Report Type: 
  Country: None (occurrence: None)
  Receive Date: 20080728
  Receipt Date: 20080724
  Transmission Date: 20090109
  Serious: Yes (Other)
  Sender: FDA-Public Use
  Company Number: B0361357A

PATIENT
  Age: 18 Year
  Sex: Male

DRUGS (8)
  1. SEROXAT [Suspect]
     Route: 065
     Dates: start: 19980218
  2. EDRONAX [Concomitant]
     Dates: start: 19980506
  3. ECSTASY [Concomitant]
     Dates: start: 20070901
  4. OMEPRAZOLE [Concomitant]
  5. MONTELUKAST SODIUM [Concomitant]
  6. SILDENAFIL CITRATE [Concomitant]
  7. ANISEED [Concomitant]
  8. ALBUTEROL [Concomitant]

REACTIONS (17)
  - AGGRESSION [None]
  - AGITATION [None]
  - ANGER [None]
  - DECREASED APPETITE [None]
  - DIARRHOEA [None]
  - DISTURBANCE IN ATTENTION [None]
  - DIZZINESS [None]
  - DRUG WITHDRAWAL SYNDROME [None]
  - EMOTIONAL DISTRESS [None]
  - HEADACHE [None]
  - HYPERHIDROSIS [None]
  - MALAISE [None]
  - NAUSEA [None]
  - PARAESTHESIA [None]
  - SUICIDAL IDEATION [None]
  - SYNCOPE [None]
  - THINKING ABNORMAL [None]
